FAERS Safety Report 14176625 (Version 1)
Quarter: 2017Q4

REPORT INFORMATION
  Report Type: Spontaneous
  Country: US (occurrence: US)
  Receive Date: 20171109
  Receipt Date: 20171109
  Transmission Date: 20180321
  Serious: Yes (Disabling)
  Sender: FDA-Public Use
  Company Number: None

PATIENT
  Age: 6 Year
  Sex: Female
  Weight: 22.5 kg

DRUGS (1)
  1. CLOBETASOL PROPIONATE FOAM 5% [Suspect]
     Active Substance: CLOBETASOL PROPIONATE
     Dates: start: 20151004, end: 20171101

REACTIONS (9)
  - Erythema [None]
  - Skin burning sensation [None]
  - Skin exfoliation [None]
  - Lymphadenopathy [None]
  - Insomnia [None]
  - Pain [None]
  - Skin fissures [None]
  - Pruritus [None]
  - Dry skin [None]

NARRATIVE: CASE EVENT DATE: 20160110
